FAERS Safety Report 20313900 (Version 1)
Quarter: 2022Q1

REPORT INFORMATION
  Report Type: Spontaneous
  Country: US (occurrence: US)
  Receive Date: 20220109
  Receipt Date: 20220109
  Transmission Date: 20220423
  Serious: No
  Sender: FDA-Public Use
  Company Number: US-SA-SAC20211230000768

PATIENT
  Sex: Female

DRUGS (1)
  1. DUPIXENT [Suspect]
     Active Substance: DUPILUMAB
     Indication: Dermatitis atopic
     Dosage: 300 MG, QOW
     Route: 058
     Dates: start: 20190824

REACTIONS (7)
  - Discomfort [Unknown]
  - Rash [Unknown]
  - Asthma [Unknown]
  - Impaired quality of life [Unknown]
  - Sleep disorder [Unknown]
  - Product dose omission issue [Unknown]
  - Dermatitis atopic [Unknown]
